FAERS Safety Report 7938908-2 (Version None)
Quarter: 2011Q4

REPORT INFORMATION
  Report Type: 
  Country: None (occurrence: None)
  Receive Date: 20111124
  Receipt Date: 20111115
  Transmission Date: 20120403
  Serious: Yes (Hospitalization)
  Sender: FDA-Public Use
  Company Number: CA-JNJFOC-20111107065

PATIENT
  Sex: Female
  Weight: 67 kg

DRUGS (11)
  1. FEOSOL [Concomitant]
     Route: 065
  2. REMICADE [Suspect]
     Indication: COLITIS ULCERATIVE
     Route: 042
     Dates: start: 20110922, end: 20111115
  3. FOLIC ACID [Concomitant]
     Route: 065
  4. METHOTREXATE [Concomitant]
     Route: 048
  5. BISOPROLOL FUMARATE [Concomitant]
     Route: 065
  6. VITAMIN D [Concomitant]
     Dosage: 1000 UNITS
     Route: 048
  7. DABIGATRAN [Concomitant]
     Route: 065
  8. VITAMIN B-12 [Concomitant]
     Route: 065
  9. METFORMIN [Concomitant]
     Indication: DIABETES MELLITUS
     Route: 065
  10. ASPIRIN [Concomitant]
     Route: 065
  11. LIPITOR [Concomitant]
     Route: 048

REACTIONS (2)
  - INTESTINAL STRANGULATION [None]
  - HAEMOGLOBIN DECREASED [None]
